FAERS Safety Report 14205672 (Version 1)
Quarter: 2017Q4

REPORT INFORMATION
  Report Type: Spontaneous
  Country: NZ (occurrence: NZ)
  Receive Date: 20171120
  Receipt Date: 20171120
  Transmission Date: 20180321
  Serious: Yes (Life-Threatening, Hospitalization)
  Sender: FDA-Public Use
  Company Number: NZ-SA-2017SA210619

PATIENT
  Age: 73 Year
  Sex: Female
  Weight: 107 kg

DRUGS (2)
  1. CLEXANE [Suspect]
     Active Substance: ENOXAPARIN SODIUM
     Indication: ACUTE MYOCARDIAL INFARCTION
     Route: 058
     Dates: start: 20170913, end: 20170923
  2. ASPIRIN. [Concomitant]
     Active Substance: ASPIRIN

REACTIONS (7)
  - Hypotension [Unknown]
  - Haemoglobin decreased [Unknown]
  - Infection [Unknown]
  - Abdominal pain [Unknown]
  - Abdominal wall haematoma [Recovering/Resolving]
  - Injection site reaction [Unknown]
  - Condition aggravated [Unknown]

NARRATIVE: CASE EVENT DATE: 20170921
